FAERS Safety Report 8913467 (Version 1)
Quarter: 2012Q4

REPORT INFORMATION
  Report Type: Spontaneous
  Country: DK (occurrence: None)
  Receive Date: 20121113
  Receipt Date: 20121113
  Transmission Date: 20130627
  Serious: Yes (Hospitalization)
  Sender: FDA-Public Use
  Company Number: 2012MA013189

PATIENT
  Age: 52 Year
  Sex: Female

DRUGS (2)
  1. FEVERALL [Suspect]
     Route: 048
     Dates: start: 20121015, end: 20121016
  2. LEVOTUSS [Suspect]
     Route: 048
     Dates: start: 20121015, end: 20121016

REACTIONS (3)
  - Thrombocytopenia [None]
  - Mouth haemorrhage [None]
  - Petechiae [None]
